FAERS Safety Report 7257280-7 (Version None)
Quarter: 2011Q1

REPORT INFORMATION
  Report Type: 
  Country: None (occurrence: None)
  Receive Date: 20110129
  Receipt Date: 20100625
  Transmission Date: 20110831
  Serious: No
  Sender: FDA-Public Use
  Company Number: US-ABBOTT-10P-163-0654188-00

PATIENT
  Sex: Male
  Weight: 68.1 kg

DRUGS (4)
  1. HUMIRA [Suspect]
     Indication: COLITIS ULCERATIVE
     Route: 058
     Dates: start: 20100201
  2. ALLEGRA D 24 HOUR [Concomitant]
     Indication: SEASONAL ALLERGY
  3. COLAZAL [Concomitant]
     Indication: COLITIS ULCERATIVE
  4. FOLIC ACID [Concomitant]
     Indication: VITAMIN SUPPLEMENTATION

REACTIONS (3)
  - FATIGUE [None]
  - ARTHRALGIA [None]
  - HEADACHE [None]
